FAERS Safety Report 17584831 (Version 4)
Quarter: 2025Q3

REPORT INFORMATION
  Report Type: Spontaneous
  Country: EU (occurrence: EU)
  Receive Date: 20200326
  Receipt Date: 20250827
  Transmission Date: 20251021
  Serious: Yes (Death, Other)
  Sender: MERCK SHARP & DOHME LLC
  Company Number: None

PATIENT
  Age: 21 Year
  Sex: Male

DRUGS (7)
  1. CASPOFUNGIN ACETATE [Suspect]
     Active Substance: CASPOFUNGIN ACETATE
     Indication: Aspergillus infection
     Dosage: DOSE DESCRIPTION : 70 MG, QD?DAILY DOSE : 70 MILLIGRAM
  2. CASPOFUNGIN ACETATE [Suspect]
     Active Substance: CASPOFUNGIN ACETATE
     Indication: Aspergillus infection
     Dosage: DOSE DESCRIPTION : 70 MG, QD?DAILY DOSE : 70 MILLIGRAM?REGIMEN DOSE : 6300  MILLIGRAM
  3. VORICONAZOLE [Concomitant]
     Active Substance: VORICONAZOLE
     Indication: Aspergillus infection
     Dosage: DOSE DESCRIPTION : 12 MG/KG, QD?DAILY DOSE : 12 MILLIGRAM/KILOGRAM
  4. VORICONAZOLE [Concomitant]
     Active Substance: VORICONAZOLE
     Indication: Aspergillus infection
     Dosage: DOSE DESCRIPTION : 8 MG/KG, QD?DAILY DOSE : 8 MILLIGRAM/KILOGRAM?REGIMEN DOSE : 208  MILLIGRAM/KI...
  5. VORICONAZOLE [Concomitant]
     Active Substance: VORICONAZOLE
     Indication: Aspergillus infection
     Dosage: DOSE DESCRIPTION : UNK, QD
  6. AMPHOTERICIN B [Concomitant]
     Active Substance: AMPHOTERICIN B
     Indication: Aspergillus infection
     Dosage: DOSE DESCRIPTION : 3 MG/KG/DAY TO A CUMULATIVE DOSE OF 5G
  7. AMPHOTERICIN B [Concomitant]
     Active Substance: AMPHOTERICIN B
     Indication: Aspergillus infection
     Dosage: DOSE DESCRIPTION : 5 MG/KG/DAY, CUMULATIVE DOSE 4.75 G

REACTIONS (6)
  - Acute respiratory failure [Fatal]
  - Paraplegia [Not Recovered/Not Resolved]
  - Aspergillus infection [Unknown]
  - Hypokalaemia [Unknown]
  - Proteinuria [Unknown]
  - Drug ineffective [Unknown]
